FAERS Safety Report 5431569-6 (Version None)
Quarter: 2007Q3

REPORT INFORMATION
  Report Type: 
  Country: None (occurrence: None)
  Receive Date: 20070830
  Receipt Date: 20070827
  Transmission Date: 20080115
  Serious: Yes (Life-Threatening)
  Sender: FDA-Public Use
  Company Number: HQWYE847728AUG07

PATIENT
  Age: 49 Year
  Sex: Male

DRUGS (1)
  1. CORDARONE [Suspect]
     Dosage: UNKNOWN DOSE AND FREQUENCY
     Route: 048
     Dates: start: 20050101, end: 20070101

REACTIONS (2)
  - HYPERTHYROIDISM [None]
  - THYROIDITIS [None]
